FAERS Safety Report 5897370-4 (Version None)
Quarter: 2008Q3

REPORT INFORMATION
  Report Type: 
  Country: None (occurrence: None)
  Receive Date: 20080908
  Receipt Date: 20080227
  Transmission Date: 20090109
  Serious: Yes (Hospitalization)
  Sender: FDA-Public Use
  Company Number: A03200800769

PATIENT
  Age: 57 Year
  Sex: Male

DRUGS (12)
  1. PLAQUENIL [Suspect]
     Indication: RHEUMATOID ARTHRITIS
     Dosage: 200 MG BID - ORAL
     Route: 048
     Dates: start: 20050701
  2. PREDNISONE TAB [Suspect]
     Dosage: 10 MG QD - ORAL
     Route: 048
     Dates: start: 20051116
  3. ETANERCEPT - UNKNOWN - UNIT DOSE [Suspect]
     Indication: RHEUMATOID ARTHRITIS
     Dosage: 25 MG 2/WEEK -  SUBCUTANIOUS
     Route: 058
     Dates: start: 20030417
  4. DICLOFENAC [Concomitant]
  5. CEVIMELINE [Concomitant]
  6. FLUTICASONE PROPIONATE [Concomitant]
  7. METOPROLOL SUCCINATE [Concomitant]
  8. OMEPRAZOLE [Concomitant]
  9. FEXOFENADINE [Concomitant]
  10. LISINOPRIL [Concomitant]
  11. HYDROCHLOROTHIAZIDE [Concomitant]
  12. LOSARTAN POTASSIUM [Concomitant]

REACTIONS (4)
  - BRADYCARDIA [None]
  - PLEURAL EFFUSION [None]
  - PNEUMONIA [None]
  - PRESYNCOPE [None]
